FAERS Safety Report 22521449 (Version 1)
Quarter: 2023Q2

REPORT INFORMATION
  Report Type: Spontaneous
  Country: US (occurrence: US)
  Receive Date: 20230605
  Receipt Date: 20230605
  Transmission Date: 20230721
  Serious: No
  Sender: FDA-Public Use
  Company Number: US-PFIZER INC-202300207954

PATIENT
  Sex: Female

DRUGS (1)
  1. MENEST [Suspect]
     Active Substance: ESTROGENS, ESTERIFIED
     Dosage: 0.5 DF, 1X/DAY

REACTIONS (1)
  - Palpitations [Recovered/Resolved]
